FAERS Safety Report 24940696 (Version 1)
Quarter: 2025Q1

REPORT INFORMATION
  Report Type: Spontaneous
  Country: GB (occurrence: GB)
  Receive Date: 20250207
  Receipt Date: 20250207
  Transmission Date: 20250409
  Serious: Yes (Hospitalization, Other)
  Sender: BAUSCH AND LOMB
  Company Number: GB-BAUSCH-BL-2025-001575

PATIENT
  Age: 55 Year
  Sex: Male

DRUGS (6)
  1. RIFAXIMIN [Suspect]
     Active Substance: RIFAXIMIN
     Indication: Hepatic encephalopathy
     Route: 065
  2. LACTULOSE [Suspect]
     Active Substance: LACTULOSE
     Indication: Hepatic encephalopathy
     Dosage: DOSE WAS OPTIMISED TO INCREASE FREQUENCY OF BOWEL MOTIONS TO 2-3 TIMES PER DAY
     Route: 065
  3. LACTULOSE [Suspect]
     Active Substance: LACTULOSE
     Indication: Hepatitis alcoholic
  4. LACTULOSE [Suspect]
     Active Substance: LACTULOSE
     Indication: Frequent bowel movements
  5. CARVEDILOL [Concomitant]
     Active Substance: CARVEDILOL
     Indication: Product used for unknown indication
  6. FUROSEMIDE [Concomitant]
     Active Substance: FUROSEMIDE
     Indication: Product used for unknown indication

REACTIONS (8)
  - Hepatitis alcoholic [Unknown]
  - Hepatorenal syndrome [Unknown]
  - Hepatic encephalopathy [Unknown]
  - Condition aggravated [Unknown]
  - Gastric varices [Unknown]
  - Acute kidney injury [Unknown]
  - Loss of personal independence in daily activities [Unknown]
  - Drug ineffective [Unknown]
